FAERS Safety Report 26086496 (Version 1)
Quarter: 2025Q4

REPORT INFORMATION
  Report Type: Spontaneous
  Country: EU (occurrence: EU)
  Receive Date: 20251125
  Receipt Date: 20251125
  Transmission Date: 20260118
  Serious: Yes (Other)
  Sender: AMGEN
  Company Number: EU-ABBVIE-6542412

PATIENT
  Sex: Male

DRUGS (4)
  1. ADALIMUMAB [Suspect]
     Active Substance: ADALIMUMAB
     Indication: Crohn^s disease
     Dosage: FIRST ADMIN DATE: 2007, LAST ADMIN DATE: 2016
     Route: 058
  2. INFLIXIMAB [Suspect]
     Active Substance: INFLIXIMAB
     Indication: Product used for unknown indication
     Dosage: UNK
     Route: 065
     Dates: start: 201011, end: 201210
  3. AZATHIOPRINE [Suspect]
     Active Substance: AZATHIOPRINE
     Indication: Product used for unknown indication
     Dosage: FIRST ADMIN DATE: 2006 AND LAST ADMIN DATE : 2010
     Route: 065
  4. VEDOLIZUMAB [Concomitant]
     Active Substance: VEDOLIZUMAB
     Indication: Product used for unknown indication
     Dosage: UNK
     Route: 065
     Dates: start: 2014

REACTIONS (12)
  - Ileocaecal resection [Unknown]
  - Mechanical ileus [Unknown]
  - Ileostomy [Unknown]
  - Fistula of small intestine [Unknown]
  - Nephrolithiasis [Unknown]
  - Abdominal abscess [Unknown]
  - Drug intolerance [Unknown]
  - Anastomotic complication [Unknown]
  - Hiatus hernia [Unknown]
  - Splenomegaly [Unknown]
  - Therapeutic product effect decreased [Unknown]
  - Muscle spasms [Unknown]

NARRATIVE: CASE EVENT DATE: 20101101
